FAERS Safety Report 18233141 (Version 1)
Quarter: 2020Q3

REPORT INFORMATION
  Report Type: Spontaneous
  Country: US (occurrence: US)
  Receive Date: 20200904
  Receipt Date: 20200904
  Transmission Date: 20201103
  Serious: Yes (Hospitalization)
  Sender: FDA-Public Use
  Company Number: US-STRIDES ARCOLAB LIMITED-2020SP010548

PATIENT
  Age: 31 Year
  Sex: Female

DRUGS (1)
  1. POTASSIUM CITRATE. [Suspect]
     Active Substance: POTASSIUM CITRATE
     Indication: BLOOD POTASSIUM DECREASED
     Dosage: 40 MILLIEQUIVALENT
     Route: 065

REACTIONS (9)
  - Tenosynovitis [Recovered/Resolved]
  - Muscle contractions involuntary [Recovered/Resolved]
  - Oedema [Recovered/Resolved]
  - Foot deformity [Recovered/Resolved]
  - Movement disorder [Recovered/Resolved]
  - Dystonia [Recovered/Resolved]
  - Myotonia [Recovered/Resolved]
  - Muscle spasms [Recovered/Resolved]
  - Myalgia [Recovered/Resolved]
